FAERS Safety Report 18340307 (Version 1)
Quarter: 2020Q4

REPORT INFORMATION
  Report Type: Spontaneous
  Country: US (occurrence: US)
  Receive Date: 20201002
  Receipt Date: 20201002
  Transmission Date: 20210113
  Serious: No
  Sender: FDA-Public Use
  Company Number: US-PERRIGO-19US015171

PATIENT
  Sex: Male

DRUGS (2)
  1. NICOTINE POLACRILEX [Suspect]
     Active Substance: NICOTINE
     Indication: SMOKING CESSATION THERAPY
     Dosage: UNKNOWN, UNKNOWN
     Route: 002
     Dates: start: 20191205, end: 20191205
  2. NICOTINE POLACRILEX [Suspect]
     Active Substance: NICOTINE
     Indication: SUBSTANCE USE
     Dosage: UNKNOWN, UNKNOWN
     Route: 002
     Dates: start: 2004, end: 2004

REACTIONS (3)
  - Nausea [Recovering/Resolving]
  - Off label use [Recovered/Resolved]
  - Drug ineffective [Unknown]

NARRATIVE: CASE EVENT DATE: 2004
